FAERS Safety Report 22529981 (Version 1)
Quarter: 2023Q2

REPORT INFORMATION
  Report Type: Spontaneous
  Country: US (occurrence: US)
  Receive Date: 20230607
  Receipt Date: 20230607
  Transmission Date: 20230721
  Serious: Yes (Other)
  Sender: FDA-Public Use
  Company Number: US-PERRIGO-23US006531

PATIENT
  Age: 1 Year
  Sex: Female
  Weight: 14.512 kg

DRUGS (4)
  1. PIPERONYL BUTOXIDE\PYRETHRUM EXTRACT [Suspect]
     Active Substance: PIPERONYL BUTOXIDE\PYRETHRUM EXTRACT
     Indication: Lice infestation
     Dosage: 1 OUNCE, ONCE
     Route: 061
     Dates: start: 202303, end: 202303
  2. PIPERONYL BUTOXIDE\PYRETHRUM EXTRACT [Suspect]
     Active Substance: PIPERONYL BUTOXIDE\PYRETHRUM EXTRACT
     Dosage: 1 OUNCE, ONCE
     Route: 061
     Dates: start: 202303, end: 202303
  3. PIPERONYL BUTOXIDE\PYRETHRUM EXTRACT [Suspect]
     Active Substance: PIPERONYL BUTOXIDE\PYRETHRUM EXTRACT
     Dosage: UNKNOWN, ONCE
     Route: 047
     Dates: start: 20230529, end: 20230529
  4. PIPERONYL BUTOXIDE\PYRETHRUM EXTRACT [Suspect]
     Active Substance: PIPERONYL BUTOXIDE\PYRETHRUM EXTRACT
     Dosage: 1 OUNCE, ONCE AT 0900
     Route: 061
     Dates: start: 20230529, end: 20230529

REACTIONS (11)
  - Ulcerative keratitis [Recovering/Resolving]
  - Chemical burns of eye [Recovering/Resolving]
  - Oculogyric crisis [Recovered/Resolved]
  - Apraxia [Recovered/Resolved]
  - Screaming [Recovered/Resolved]
  - Crying [Recovered/Resolved]
  - Eye irritation [Recovering/Resolving]
  - Ocular hyperaemia [Recovered/Resolved]
  - Lethargy [Recovered/Resolved]
  - Accidental exposure to product [Recovered/Resolved]
  - Product administered to patient of inappropriate age [Recovered/Resolved]

NARRATIVE: CASE EVENT DATE: 20230301
